FAERS Safety Report 25822457 (Version 1)
Quarter: 2025Q3

REPORT INFORMATION
  Report Type: Spontaneous
  Country: US (occurrence: US)
  Receive Date: 20250919
  Receipt Date: 20250919
  Transmission Date: 20251020
  Serious: Yes (Other)
  Sender: MYLAN
  Company Number: US-MYLANLABS-2025M1078155

PATIENT
  Age: 4 Decade
  Sex: Female

DRUGS (32)
  1. DEXAMETHASONE [Suspect]
     Active Substance: DEXAMETHASONE
     Indication: Maternal therapy to enhance foetal lung maturity
  2. DEXAMETHASONE [Suspect]
     Active Substance: DEXAMETHASONE
     Indication: Small intestine carcinoma
     Route: 065
  3. DEXAMETHASONE [Suspect]
     Active Substance: DEXAMETHASONE
     Indication: Neoplasm malignant
     Route: 065
  4. DEXAMETHASONE [Suspect]
     Active Substance: DEXAMETHASONE
  5. MAGNESIUM [Suspect]
     Active Substance: MAGNESIUM
     Indication: Nervous system disorder prophylaxis
  6. MAGNESIUM [Suspect]
     Active Substance: MAGNESIUM
     Route: 065
  7. MAGNESIUM [Suspect]
     Active Substance: MAGNESIUM
     Route: 065
  8. MAGNESIUM [Suspect]
     Active Substance: MAGNESIUM
  9. PACLITAXEL [Suspect]
     Active Substance: PACLITAXEL
     Indication: Small intestine carcinoma
     Dosage: UNK, QW
  10. PACLITAXEL [Suspect]
     Active Substance: PACLITAXEL
     Indication: Neoplasm malignant
     Dosage: UNK, QW
     Route: 065
  11. PACLITAXEL [Suspect]
     Active Substance: PACLITAXEL
     Dosage: UNK, QW
     Route: 065
  12. PACLITAXEL [Suspect]
     Active Substance: PACLITAXEL
     Dosage: UNK, QW
  13. LEUCOVORIN [Suspect]
     Active Substance: LEUCOVORIN\LEUCOVORIN CALCIUM
     Indication: Small intestine carcinoma
  14. LEUCOVORIN [Suspect]
     Active Substance: LEUCOVORIN\LEUCOVORIN CALCIUM
     Indication: Neoplasm malignant
     Route: 065
  15. LEUCOVORIN [Suspect]
     Active Substance: LEUCOVORIN\LEUCOVORIN CALCIUM
     Route: 065
  16. LEUCOVORIN [Suspect]
     Active Substance: LEUCOVORIN\LEUCOVORIN CALCIUM
  17. OXALIPLATIN [Suspect]
     Active Substance: OXALIPLATIN
     Indication: Small intestine carcinoma
  18. OXALIPLATIN [Suspect]
     Active Substance: OXALIPLATIN
     Indication: Neoplasm malignant
     Route: 065
  19. OXALIPLATIN [Suspect]
     Active Substance: OXALIPLATIN
     Route: 065
  20. OXALIPLATIN [Suspect]
     Active Substance: OXALIPLATIN
  21. FLUOROURACIL [Suspect]
     Active Substance: FLUOROURACIL
     Indication: Small intestine carcinoma
  22. FLUOROURACIL [Suspect]
     Active Substance: FLUOROURACIL
     Indication: Neoplasm malignant
     Route: 065
  23. FLUOROURACIL [Suspect]
     Active Substance: FLUOROURACIL
     Route: 065
  24. FLUOROURACIL [Suspect]
     Active Substance: FLUOROURACIL
  25. TRANEXAMIC ACID [Concomitant]
     Active Substance: TRANEXAMIC ACID
     Indication: Postpartum haemorrhage
  26. TRANEXAMIC ACID [Concomitant]
     Active Substance: TRANEXAMIC ACID
     Route: 065
  27. TRANEXAMIC ACID [Concomitant]
     Active Substance: TRANEXAMIC ACID
     Route: 065
  28. TRANEXAMIC ACID [Concomitant]
     Active Substance: TRANEXAMIC ACID
  29. PHENYLEPHRINE [Concomitant]
     Active Substance: PHENYLEPHRINE
     Indication: Hypotension
  30. PHENYLEPHRINE [Concomitant]
     Active Substance: PHENYLEPHRINE
     Route: 065
  31. PHENYLEPHRINE [Concomitant]
     Active Substance: PHENYLEPHRINE
     Route: 065
  32. PHENYLEPHRINE [Concomitant]
     Active Substance: PHENYLEPHRINE

REACTIONS (5)
  - Drug ineffective [Unknown]
  - Disease progression [Unknown]
  - Decreased appetite [Unknown]
  - Nausea [Unknown]
  - Maternal exposure during pregnancy [Unknown]
